FAERS Safety Report 7091163-0 (Version None)
Quarter: 2010Q4

REPORT INFORMATION
  Report Type: 
  Country: None (occurrence: None)
  Receive Date: 20101109
  Receipt Date: 20101101
  Transmission Date: 20110411
  Serious: Yes (Hospitalization)
  Sender: FDA-Public Use
  Company Number: JP-ROCHE-734059

PATIENT
  Sex: Female
  Weight: 51 kg

DRUGS (17)
  1. BEVACIZUMAB [Suspect]
     Indication: BREAST CANCER
     Dosage: ROUTE: INTRAVENOUS (NOT OTHERWISE SPECIFIED)
     Route: 042
     Dates: start: 20080612, end: 20100831
  2. BEVACIZUMAB [Suspect]
     Route: 042
     Dates: start: 20100928, end: 20100928
  3. PACLITAXEL [Suspect]
     Indication: BREAST CANCER
     Dosage: [YASUKUSURI] REPETITIVE ADMINISTRATION THREE WEEKS LATER FOR ONE WEEK.
     Route: 042
     Dates: start: 20080612, end: 20100906
  4. PACLITAXEL [Suspect]
     Dosage: [YASUKUSURI] REPETITIVE ADMINISTRATION THREE WEEKS LATER FOR ONE WEEK.
     Route: 042
     Dates: start: 20100928, end: 20101011
  5. DEXART [Suspect]
     Indication: PREMEDICATION
     Route: 041
     Dates: start: 20080612
  6. KYTRIL [Concomitant]
     Route: 041
     Dates: start: 20080612
  7. ZANTAC [Concomitant]
     Route: 041
     Dates: start: 20080612
  8. RESTAMIN [Concomitant]
     Route: 048
     Dates: start: 20080612
  9. AMLODIPINE [Concomitant]
     Dosage: ADMINISTERING AFTER BREAKFAST
     Route: 048
     Dates: start: 20090325
  10. AMLODIPINE [Concomitant]
     Dosage: ADMINISTERING AFTER BREAKFAST
     Route: 048
     Dates: start: 20091101
  11. BIOFERMIN [Concomitant]
     Dosage: DOSE FORM: PERORAL AGENT, NOTE: A DOSE
     Route: 048
     Dates: start: 20090929
  12. MUCOSTA [Concomitant]
     Dosage: NOTE: A DOSE
     Route: 048
     Dates: start: 20100129, end: 20101012
  13. MYSLEE [Concomitant]
     Route: 048
     Dates: start: 20080626
  14. MYSLEE [Concomitant]
     Dosage: NOTE: A DOSE
     Route: 048
     Dates: start: 20100810
  15. POVIDONE IODINE [Concomitant]
     Dosage: DRUG:NEGMIN GARGLE(POVIDONE IODINE), ROUTE: OROPHARINGEAL, PROPERLY
     Dates: start: 20080608
  16. POVIDONE IODINE [Concomitant]
     Dosage: DOSE FORM: INCLUDE ASPECT
     Dates: start: 20080618, end: 20101011
  17. LOXONIN [Concomitant]
     Dosage: A DOSE
     Route: 048

REACTIONS (1)
  - OSTEOMYELITIS [None]
